FAERS Safety Report 8738959 (Version 2)
Quarter: 2013Q1

REPORT INFORMATION
  Report Type: Report from Study
  Country: RU (occurrence: RU)
  Receive Date: 20120823
  Receipt Date: 20130108
  Transmission Date: 20140127
  Serious: Yes (Hospitalization)
  Sender: FDA-Public Use
  Company Number: PHHO2012RU012220

PATIENT
  Age: 40 Year
  Sex: Female
  Weight: 98 kg

DRUGS (2)
  1. FTY [Suspect]
     Indication: MULTIPLE SCLEROSIS
     Dosage: 0.5 MG, QD
     Route: 048
     Dates: start: 20110516
  2. CHLORHEXIDINE [Concomitant]
     Indication: WOUND
     Dosage: UNK
     Route: 061
     Dates: start: 20120820, end: 20120930

REACTIONS (1)
  - Injection site abscess [Recovered/Resolved]
